FAERS Safety Report 5231154-5 (Version None)
Quarter: 2007Q1

REPORT INFORMATION
  Report Type: 
  Country: None (occurrence: None)
  Receive Date: 20070206
  Receipt Date: 20070128
  Transmission Date: 20070707
  Serious: Yes (Hospitalization)
  Sender: FDA-Public Use
  Company Number: FR-ROCHE-460587

PATIENT
  Age: 63 Year
  Sex: Male
  Weight: 82 kg

DRUGS (15)
  1. ZENAPAX [Suspect]
     Indication: DRUG USE FOR UNKNOWN INDICATION
     Route: 065
     Dates: start: 20060720, end: 20060720
  2. MYCOPHENOLATE MOFETIL [Suspect]
     Route: 048
     Dates: start: 20060720
  3. SOLU-MEDROL [Suspect]
     Dosage: REPORTED AS SOLUMEDROL METHYLPREDNISOLONE.
     Route: 065
     Dates: start: 20060721, end: 20060727
  4. NEORAL [Suspect]
     Route: 065
     Dates: start: 20060723
  5. HEPARIN [Concomitant]
     Dates: start: 20060722, end: 20060821
  6. INSULIN [Concomitant]
  7. FUROSEMIDE [Concomitant]
     Dates: start: 20060720, end: 20060809
  8. ATENOLOL [Concomitant]
     Dates: start: 20060721, end: 20060805
  9. ASPIRIN [Concomitant]
     Dates: start: 20060721
  10. VITAMIN D3 [Concomitant]
     Dosage: REPORTED AS ^VITAMIN 25 OH D3^ TOTAL DAILY DOSE REPORTED AS XX DROPS
  11. AMLODIPINE [Concomitant]
  12. URAPIDIL [Concomitant]
  13. VASTAREL [Concomitant]
     Dates: start: 20060722, end: 20060805
  14. OMEPRAZOLE [Concomitant]
     Dates: start: 20060720
  15. NITRODERM [Concomitant]
     Dates: start: 20060722, end: 20060729

REACTIONS (1)
  - STAPHYLOCOCCAL SEPSIS [None]
